FAERS Safety Report 9914536 (Version 1)
Quarter: 2014Q1

REPORT INFORMATION
  Report Type: Spontaneous
  Country: US (occurrence: US)
  Receive Date: 20140220
  Receipt Date: 20140220
  Transmission Date: 20141002
  Serious: No
  Sender: FDA-Public Use
  Company Number: US-009507513-1402USA008518

PATIENT
  Age: 31 Year
  Sex: Female
  Weight: 47.17 kg

DRUGS (2)
  1. NUVARING [Suspect]
     Indication: CONTRACEPTION
     Dosage: 3 WEEKS IN 1 WEEKS RING FREE BREAK
     Route: 067
     Dates: start: 2009
  2. NUVARING [Suspect]
     Indication: MOOD SWINGS
     Dosage: USE NUVARING CONTINUOUSLY FOR 3 MOTHS
     Dates: start: 2009, end: 2009

REACTIONS (6)
  - Metrorrhagia [Unknown]
  - Device expulsion [Unknown]
  - Unintended pregnancy [Unknown]
  - Inappropriate schedule of drug administration [Unknown]
  - Off label use [Unknown]
  - Drug prescribing error [Unknown]
